FAERS Safety Report 26148501 (Version 1)
Quarter: 2025Q4

REPORT INFORMATION
  Report Type: Spontaneous
  Country: EU (occurrence: EU)
  Receive Date: 20251212
  Receipt Date: 20251212
  Transmission Date: 20260118
  Serious: Yes (Other)
  Sender: PHARMOBEDIENT CONSULTING, LLC
  Company Number: EU-Pharmobedient-000621

PATIENT
  Age: 56 Year
  Sex: Female
  Weight: 0 kg

DRUGS (3)
  1. LETROZOLE [Suspect]
     Active Substance: LETROZOLE
     Indication: Breast cancer
     Dates: start: 2020
  2. ABEMACICLIB [Suspect]
     Active Substance: ABEMACICLIB
     Indication: Breast cancer
     Route: 048
     Dates: start: 2020
  3. ZOLEDRONIC ACID [Concomitant]
     Active Substance: ZOLEDRONIC ACID
     Indication: Metastases to bone
     Route: 042

REACTIONS (3)
  - Retinal vein occlusion [Recovering/Resolving]
  - Retinal artery occlusion [Recovering/Resolving]
  - Hypercoagulation [Recovering/Resolving]

NARRATIVE: CASE EVENT DATE: 20231108
